FAERS Safety Report 5031055-1 (Version None)
Quarter: 2006Q2

REPORT INFORMATION
  Report Type: 
  Country: None (occurrence: None)
  Receive Date: 20060619
  Receipt Date: 20060619
  Transmission Date: 20061013
  Serious: Yes (Death)
  Sender: FDA-Public Use
  Company Number: None

PATIENT
  Age: 80 Year
  Sex: Female
  Weight: 40.8237 kg

DRUGS (2)
  1. PHOTOFRIN [Suspect]
     Indication: DISEASE RECURRENCE
     Dosage: IV 86.36 MG ONCE
     Route: 042
     Dates: start: 20060404
  2. PHOTOFRIN [Suspect]
     Indication: TONGUE NEOPLASM MALIGNANT STAGE UNSPECIFIED
     Dosage: IV 86.36 MG ONCE
     Route: 042
     Dates: start: 20060404

REACTIONS (1)
  - DEATH [None]
